FAERS Safety Report 15017621 (Version 8)
Quarter: 2019Q4

REPORT INFORMATION
  Report Type: Report from Study
  Country: DE (occurrence: DE)
  Receive Date: 20180615
  Receipt Date: 20191031
  Transmission Date: 20200122
  Serious: Yes (Hospitalization, Other)
  Sender: FDA-Public Use
  Company Number: DE-PFIZER INC-2018238250

PATIENT
  Age: 54 Year
  Sex: Female

DRUGS (20)
  1. TOCILIZUMAB. [Suspect]
     Active Substance: TOCILIZUMAB
     Indication: RHEUMATOID ARTHRITIS
     Dosage: 162 MG, 1X/WEEK
     Route: 058
     Dates: start: 20150302, end: 20150724
  2. OTEZLA [Suspect]
     Active Substance: APREMILAST
     Indication: PSORIATIC ARTHROPATHY
     Dosage: 0.5 DF, UNK
     Route: 048
  3. FOLIC ACID. [Concomitant]
     Active Substance: FOLIC ACID
     Route: 065
  4. TILIDIN [Concomitant]
     Active Substance: NALOXONE HYDROCHLORIDE\TILIDINE HYDROCHLORIDE
     Indication: RHEUMATOID ARTHRITIS
     Route: 065
  5. CORTISONE [Concomitant]
     Active Substance: CORTISONE
     Indication: RHEUMATOID ARTHRITIS
  6. TOCILIZUMAB. [Suspect]
     Active Substance: TOCILIZUMAB
     Dosage: 1 DOSE DEPENDING ON BODY WEIGHT, EVERY 4 WEEKS
     Route: 042
     Dates: start: 20180331
  7. LODOTRA [Concomitant]
     Active Substance: PREDNISONE
     Dosage: 5 MG, UNK
     Route: 065
  8. DEKRISTOL [Concomitant]
     Active Substance: CHOLECALCIFEROL
     Dosage: 1 UNK, WEEKLY
     Route: 065
  9. ALPHA-TOCOPHEROL [Concomitant]
     Active Substance: .ALPHA.-TOCOPHEROL
     Route: 065
  10. TOCILIZUMAB. [Suspect]
     Active Substance: TOCILIZUMAB
     Indication: RHEUMATOID ARTHRITIS
     Dosage: 800 MG, MONTHLY
     Route: 042
     Dates: start: 20150731
  11. HCTZ [Suspect]
     Active Substance: HYDROCHLOROTHIAZIDE
     Route: 065
  12. METOPROLOL. [Suspect]
     Active Substance: METOPROLOL
     Route: 065
  13. METHOTREXATE SODIUM. [Suspect]
     Active Substance: METHOTREXATE SODIUM
     Indication: RHEUMATOID ARTHRITIS
     Dosage: 15 MG, WEEKLY (ON FRIDAYS AND SATURDAYS))
     Route: 048
  14. METHIONIN [Concomitant]
     Active Substance: METHIONINE
  15. VITAMIN C [Concomitant]
     Active Substance: ASCORBIC ACID
     Route: 065
  16. SELENIUM [Concomitant]
     Active Substance: SELENIUM
  17. METHOTREXATE SODIUM. [Suspect]
     Active Substance: METHOTREXATE SODIUM
     Dosage: 10 MG, UNK
  18. PANTOPRAZOL [Concomitant]
     Active Substance: PANTOPRAZOLE SODIUM
     Route: 065
  19. TRAUMAL [Concomitant]
     Dosage: 50
     Route: 065
  20. CORTISONE [Concomitant]
     Active Substance: CORTISONE
     Indication: RHEUMATOID ARTHRITIS

REACTIONS (21)
  - Drug ineffective [Unknown]
  - Migraine [Unknown]
  - Arthralgia [Unknown]
  - Myosclerosis [Unknown]
  - Liver function test increased [Not Recovered/Not Resolved]
  - Joint swelling [Unknown]
  - Gastric disorder [Unknown]
  - Arthritis [Unknown]
  - Drug ineffective [Unknown]
  - Overweight [Unknown]
  - C-reactive protein increased [Recovered/Resolved]
  - Infection [Recovered/Resolved]
  - Arthropathy [Recovering/Resolving]
  - Psoriatic arthropathy [Recovering/Resolving]
  - Therapeutic product effect decreased [Unknown]
  - Drug hypersensitivity [Recovered/Resolved]
  - Psoriasis [Recovered/Resolved]
  - Rheumatoid arthritis [Recovering/Resolving]
  - Laboratory test abnormal [Recovering/Resolving]
  - Dyspnoea [Recovered/Resolved]
  - Pneumonia [Recovered/Resolved]

NARRATIVE: CASE EVENT DATE: 20150302
